FAERS Safety Report 6221533-1 (Version None)
Quarter: 2009Q2

REPORT INFORMATION
  Report Type: 
  Country: None (occurrence: None)
  Receive Date: 20090610
  Receipt Date: 20090608
  Transmission Date: 20091009
  Serious: Yes (Life-Threatening, Hospitalization)
  Sender: FDA-Public Use
  Company Number: PHEH2009US01497

PATIENT
  Sex: Female
  Weight: 60.136 kg

DRUGS (4)
  1. RECLAST [Suspect]
     Indication: OSTEOPOROSIS
     Dosage: 5 MG IV ONCE YEARLY
     Dates: start: 20090115, end: 20090115
  2. FLEXERIL [Concomitant]
     Dosage: UNK
     Dates: start: 20080528
  3. VALIUM [Concomitant]
     Dosage: UNK
     Dates: start: 20080601, end: 20080601
  4. PRILOSEC [Concomitant]
     Dosage: UNK
     Dates: start: 20080708

REACTIONS (5)
  - DEEP VEIN THROMBOSIS [None]
  - DYSPNOEA [None]
  - LOCAL SWELLING [None]
  - PAIN [None]
  - PULMONARY EMBOLISM [None]
